FAERS Safety Report 13685078 (Version 1)
Quarter: 2017Q2

REPORT INFORMATION
  Report Type: Spontaneous
  Country: GR (occurrence: GR)
  Receive Date: 20170623
  Receipt Date: 20170623
  Transmission Date: 20170830
  Serious: Yes (Other)
  Sender: FDA-Public Use
  Company Number: GR-RARE DISEASE THERAPEUTICS, INC.-2022445

PATIENT
  Age: 11 Year

DRUGS (10)
  1. VINCRISTINE SULFATE. [Suspect]
     Active Substance: VINCRISTINE SULFATE
  2. PURIXAN [Suspect]
     Active Substance: MERCAPTOPURINE
     Indication: ACUTE LYMPHOCYTIC LEUKAEMIA
  3. CLOFARABINE. [Suspect]
     Active Substance: CLOFARABINE
  4. CYCLOPHOSPHAMIDE. [Suspect]
     Active Substance: CYCLOPHOSPHAMIDE
  5. CYTOSINE ARABINOSIDE [Suspect]
     Active Substance: CYTARABINE
  6. METHOTREXATE. [Suspect]
     Active Substance: METHOTREXATE
  7. MITOXANTRONE [Suspect]
     Active Substance: MITOXANTRONE HYDROCHLORIDE
  8. DEXAMETHASONE. [Suspect]
     Active Substance: DEXAMETHASONE
  9. CORTISONE [Suspect]
     Active Substance: CORTISONE\HYDROCORTISONE
  10. BLINATUMOMAB [Suspect]
     Active Substance: BLINATUMOMAB

REACTIONS (2)
  - Cerebral aspergillosis [Unknown]
  - Febrile neutropenia [Unknown]
